FAERS Safety Report 5195223-0 (Version None)
Quarter: 2006Q4

REPORT INFORMATION
  Report Type: 
  Country: None (occurrence: None)
  Receive Date: 20061229
  Receipt Date: 20061106
  Transmission Date: 20070319
  Serious: Yes (Hospitalization)
  Sender: FDA-Public Use
  Company Number: JP-PFIZER INC-2006136813

PATIENT
  Sex: Male
  Weight: 59.8 kg

DRUGS (6)
  1. SU-011,248 [Suspect]
     Indication: RENAL CELL CARCINOMA STAGE UNSPECIFIED
     Route: 048
  2. ZOLEDRONIC ACID [Concomitant]
     Route: 042
  3. SALINE MIXTURE [Concomitant]
     Route: 042
     Dates: start: 20060704
  4. ZOLPIDEM TARTRATE [Concomitant]
     Route: 048
     Dates: start: 20060210
  5. CANDESARTAN CILEXETIL [Concomitant]
     Route: 048
     Dates: start: 20060315
  6. DICLOFENAC SODIUM [Concomitant]
     Route: 054
     Dates: start: 20060920

REACTIONS (7)
  - COUGH [None]
  - DISEASE PROGRESSION [None]
  - HAEMOTHORAX [None]
  - INFECTION [None]
  - NEUTROPHIL COUNT DECREASED [None]
  - TUMOUR HAEMORRHAGE [None]
  - WHITE BLOOD CELL COUNT DECREASED [None]
